FAERS Safety Report 16651763 (Version 1)
Quarter: 2019Q3

REPORT INFORMATION
  Report Type: Spontaneous
  Country: AL (occurrence: AL)
  Receive Date: 20190730
  Receipt Date: 20190730
  Transmission Date: 20191004
  Serious: Yes (Other)
  Sender: FDA-Public Use
  Company Number: None

PATIENT
  Age: 58 Year
  Sex: Female
  Weight: 87.3 kg

DRUGS (20)
  1. PROCHLORPERAZINE. [Concomitant]
     Active Substance: PROCHLORPERAZINE
  2. VITAMIN D [Concomitant]
     Active Substance: VITAMIN D NOS
  3. XGEVA [Concomitant]
     Active Substance: DENOSUMAB
  4. ONDANSETRON [Concomitant]
     Active Substance: ONDANSETRON
  5. ELIQUIS [Concomitant]
     Active Substance: APIXABAN
  6. PROAIR HFA [Concomitant]
     Active Substance: ALBUTEROL SULFATE
  7. IPRATROPIUM-ALBUTEROL [Concomitant]
     Active Substance: ALBUTEROL\IPRATROPIUM
  8. LORATADINE. [Concomitant]
     Active Substance: LORATADINE
  9. ALBUTEROL. [Concomitant]
     Active Substance: ALBUTEROL
  10. SYMBICORT [Concomitant]
     Active Substance: BUDESONIDE\FORMOTEROL FUMARATE DIHYDRATE
  11. MONTELUKAST [Concomitant]
     Active Substance: MONTELUKAST SODIUM
  12. TRAMADOL. [Concomitant]
     Active Substance: TRAMADOL
  13. EXEMASTANE [Suspect]
     Active Substance: EXEMESTANE
     Indication: BREAST CANCER FEMALE
     Route: 048
     Dates: start: 20190116, end: 20190730
  14. DOCUSATE SODIUM. [Concomitant]
     Active Substance: DOCUSATE SODIUM
  15. BENADRYL [Concomitant]
     Active Substance: DIPHENHYDRAMINE HYDROCHLORIDE
  16. CALCIUM [Concomitant]
     Active Substance: CALCIUM
  17. FLONASE [Concomitant]
     Active Substance: FLUTICASONE PROPIONATE
  18. AFINITOR [Suspect]
     Active Substance: EVEROLIMUS
     Indication: BREAST CANCER FEMALE
     Route: 048
     Dates: start: 20190312, end: 20190730
  19. MELATONIN [Concomitant]
     Active Substance: MELATONIN
  20. ZOLPIDEM [Concomitant]
     Active Substance: ZOLPIDEM TARTRATE

REACTIONS (1)
  - Disease progression [None]

NARRATIVE: CASE EVENT DATE: 20190730
